FAERS Safety Report 23287353 (Version 1)
Quarter: 2023Q4

REPORT INFORMATION
  Report Type: Spontaneous
  Country: US (occurrence: US)
  Receive Date: 20231212
  Receipt Date: 20231212
  Transmission Date: 20240110
  Serious: No
  Sender: FDA-Public Use
  Company Number: US-GLENMARK PHARMACEUTICALS-2022GMK076591

PATIENT

DRUGS (1)
  1. BETAMETHASONE DIPROPIONATE\CLOTRIMAZOLE [Suspect]
     Active Substance: BETAMETHASONE DIPROPIONATE\CLOTRIMAZOLE
     Indication: Oral fungal infection
     Dosage: UNK UNK, BID
     Route: 061
     Dates: start: 20221109

REACTIONS (4)
  - Pollakiuria [Unknown]
  - Abdominal pain [Unknown]
  - Salivary hypersecretion [Unknown]
  - Product use issue [Unknown]
